FAERS Safety Report 7051315-2 (Version None)
Quarter: 2010Q4

REPORT INFORMATION
  Report Type: 
  Country: None (occurrence: None)
  Receive Date: 20101019
  Receipt Date: 20100608
  Transmission Date: 20110411
  Serious: No
  Sender: FDA-Public Use
  Company Number: US-ASTRAZENECA-2010SE16985

PATIENT
  Age: 28 Day
  Weight: 3.9 kg

DRUGS (2)
  1. MERREM I.V. [Suspect]
     Indication: URINARY TRACT INFECTION
     Route: 042
     Dates: start: 20100412, end: 20100425
  2. IV FAT EMULSION TPN [Concomitant]
     Indication: NUTRITIONAL SUPPORT

REACTIONS (2)
  - GLUCOSE URINE PRESENT [None]
  - URINE GLUCOSE FALSE POSITIVE [None]
